FAERS Safety Report 21266136 (Version 3)
Quarter: 2022Q4

REPORT INFORMATION
  Report Type: Report from Study
  Country: DE (occurrence: DE)
  Receive Date: 20220829
  Receipt Date: 20221109
  Transmission Date: 20230112
  Serious: Yes (Hospitalization, Other)
  Sender: FDA-Public Use
  Company Number: DE-MYLANLABS-2022M1087591

PATIENT
  Age: 67 Year
  Sex: Female

DRUGS (20)
  1. ORENCIA [Suspect]
     Active Substance: ABATACEPT
     Indication: Rheumatoid arthritis
     Dosage: LAST ADMINISTRATION DATE WAS DEC 2017. FORM STRENGTH 125 MILLIGRAM
     Route: 065
     Dates: start: 201609, end: 201712
  2. HUMIRA [Suspect]
     Active Substance: ADALIMUMAB
     Indication: Rheumatoid arthritis
     Dosage: LAST ADMINISTRATION DATE WAS DEC 2015. FORM STRENGTH 40 MILIGRAM
     Route: 058
     Dates: start: 201506, end: 201512
  3. CIMZIA [Suspect]
     Active Substance: CERTOLIZUMAB PEGOL
     Indication: Rheumatoid arthritis
     Dosage: FORM STRENGTH 200 MILLIGRAM LAST ADMINISTRATION DATE WAS JUN 2015.
     Route: 065
     Dates: start: 201503, end: 201506
  4. METHOTREXATE [Suspect]
     Active Substance: METHOTREXATE
     Indication: Rheumatoid arthritis
     Route: 065
     Dates: start: 20210303
  5. METHOTREXATE [Suspect]
     Active Substance: METHOTREXATE
     Route: 065
     Dates: start: 20150907
  6. METHOTREXATE [Suspect]
     Active Substance: METHOTREXATE
     Route: 065
     Dates: start: 20180913
  7. METHOTREXATE [Suspect]
     Active Substance: METHOTREXATE
     Route: 065
     Dates: start: 20200610
  8. METHOTREXATE [Suspect]
     Active Substance: METHOTREXATE
     Route: 065
     Dates: start: 20170914
  9. METHOTREXATE [Suspect]
     Active Substance: METHOTREXATE
     Route: 065
     Dates: start: 20190326
  10. METHOTREXATE [Suspect]
     Active Substance: METHOTREXATE
     Dosage: LAST ADMINISTRATION DATE WAS 2015. FORM STRENGTH 20 MILLIGRAM
     Route: 065
     Dates: start: 20150602
  11. METHOTREXATE [Suspect]
     Active Substance: METHOTREXATE
     Route: 065
     Dates: start: 20190911
  12. METHOTREXATE [Suspect]
     Active Substance: METHOTREXATE
     Route: 065
     Dates: start: 20200903
  13. METHOTREXATE [Suspect]
     Active Substance: METHOTREXATE
     Dosage: LAST ADMINISTRATION DATE WAS 2015. FORM STRENGTH 20 MILLIGRAM
     Route: 065
     Dates: start: 20150320
  14. METHOTREXATE [Suspect]
     Active Substance: METHOTREXATE
     Dosage: LAST ADMINISTRATION DATE WAS 2017. FORM STRENGTH 20 MILLIGRAM
     Route: 065
     Dates: start: 20170309
  15. METHOTREXATE [Suspect]
     Active Substance: METHOTREXATE
     Dosage: LAST ADMINISTRATION DATE WAS 2016. FORM STRENGTH 20 MILLIGRAM
     Route: 065
     Dates: start: 20160321
  16. METHOTREXATE [Suspect]
     Active Substance: METHOTREXATE
     Dosage: LAST ADMINISTRATION DATE WAS 2016. FORM STRENGTH 20 MILLIGRAM
     Route: 065
     Dates: start: 20160915
  17. METHOTREXATE [Suspect]
     Active Substance: METHOTREXATE
     Route: 065
  18. METHOTREXATE [Suspect]
     Active Substance: METHOTREXATE
     Dosage: LAST ADMINISTRATION DATE WAS 2015. FORM STRENGTH 20 MILLIGRAM
     Route: 065
     Dates: start: 20150602
  19. METHOTREXATE [Suspect]
     Active Substance: METHOTREXATE
     Route: 065
     Dates: start: 20160321
  20. METHOTREXATE [Suspect]
     Active Substance: METHOTREXATE
     Route: 065
     Dates: start: 20170309

REACTIONS (7)
  - Carotid artery stenosis [Recovered/Resolved]
  - Cerebrovascular accident [Unknown]
  - Cerebral infarction [Unknown]
  - Gastritis erosive [Unknown]
  - Colitis ischaemic [Recovered/Resolved]
  - Limb fracture [Not Recovered/Not Resolved]
  - Hypertension [Unknown]

NARRATIVE: CASE EVENT DATE: 20190123
